FAERS Safety Report 9369464 (Version 1)
Quarter: 2013Q2

REPORT INFORMATION
  Report Type: Report from Study
  Country: US (occurrence: US)
  Receive Date: 20130626
  Receipt Date: 20130626
  Transmission Date: 20140414
  Serious: Yes (Other)
  Sender: FDA-Public Use
  Company Number: US-JNJFOC-20130613883

PATIENT
  Age: 23 Year
  Sex: 0

DRUGS (10)
  1. REMICADE [Suspect]
     Indication: COLITIS ULCERATIVE
     Route: 042
  2. HUMIRA [Suspect]
     Indication: COLITIS ULCERATIVE
     Route: 065
  3. VITAMIN C [Concomitant]
     Route: 065
  4. VITAMIN D [Concomitant]
     Route: 065
  5. VITAMIN B12 [Concomitant]
     Route: 065
  6. L-GLUTAMINE [Concomitant]
     Route: 065
  7. SERRAPEPTASE [Concomitant]
     Route: 065
  8. SACRO-B [Concomitant]
     Route: 065
  9. VENOFER [Concomitant]
     Route: 065
  10. BERBERINE [Concomitant]
     Route: 065

REACTIONS (4)
  - Joint lock [Recovered/Resolved]
  - Arthralgia [Recovered/Resolved]
  - Anaemia [Unknown]
  - Clostridium difficile infection [Unknown]
